FAERS Safety Report 9122881 (Version 2)
Quarter: 2013Q1

REPORT INFORMATION
  Report Type: Spontaneous
  Country: CN (occurrence: CN)
  Receive Date: 20130227
  Receipt Date: 20130307
  Transmission Date: 20140127
  Serious: Yes (Other)
  Sender: FDA-Public Use
  Company Number: CN-JNJFOC-20130211075

PATIENT
  Age: 6 Month
  Sex: Male
  Weight: 7 kg

DRUGS (2)
  1. MOTRIN [Suspect]
     Route: 048
  2. MOTRIN [Suspect]
     Indication: PYREXIA
     Dosage: 0.7 ML TWICE A DAY
     Route: 048
     Dates: start: 20130213, end: 20130213

REACTIONS (1)
  - Keratitis [Recovered/Resolved]
